FAERS Safety Report 6088019-9 (Version None)
Quarter: 2009Q1

REPORT INFORMATION
  Report Type: 
  Country: None (occurrence: None)
  Receive Date: 20090217
  Receipt Date: 20090202
  Transmission Date: 20090719
  Serious: Yes (Death, Other)
  Sender: FDA-Public Use
  Company Number: CHPA2009US01793

PATIENT
  Age: 45 Year
  Sex: Male

DRUGS (3)
  1. ASPIRIN [Suspect]
     Dosage: 130000 MG
  2. ETHANOL (ETHANOL) [Suspect]
  3. COCAINE (COCAINE) [Suspect]

REACTIONS (21)
  - AGGRESSION [None]
  - ALANINE AMINOTRANSFERASE INCREASED [None]
  - ASPARTATE AMINOTRANSFERASE INCREASED [None]
  - BLINDNESS [None]
  - BLOOD GLUCOSE INCREASED [None]
  - CARDIO-RESPIRATORY ARREST [None]
  - CARDIOMEGALY [None]
  - COMPLETED SUICIDE [None]
  - CONFUSIONAL STATE [None]
  - CONVULSION [None]
  - CORONARY ARTERY DISEASE [None]
  - DEAFNESS [None]
  - DRUG TOXICITY [None]
  - FEELING COLD [None]
  - HEPATIC STEATOSIS [None]
  - HEPATOSPLENOMEGALY [None]
  - MENINGEAL DISORDER [None]
  - NEPHROSCLEROSIS [None]
  - RESPIRATORY RATE INCREASED [None]
  - SINUS TACHYCARDIA [None]
  - UNRESPONSIVE TO STIMULI [None]
